FAERS Safety Report 15988518 (Version 1)
Quarter: 2019Q1

REPORT INFORMATION
  Report Type: Spontaneous
  Country: GB (occurrence: GB)
  Receive Date: 20190221
  Receipt Date: 20190221
  Transmission Date: 20190418
  Serious: Yes (Other)
  Sender: FDA-Public Use
  Company Number: GB-TEVA-2019-GB-1013801

PATIENT
  Age: 85 Year
  Sex: Female
  Weight: 46 kg

DRUGS (22)
  1. RAMIPRIL. [Suspect]
     Active Substance: RAMIPRIL
     Route: 065
     Dates: start: 20190115
  2. TEMAZEPAM. [Concomitant]
     Active Substance: TEMAZEPAM
     Dates: start: 20181023
  3. CYCLIZINE [Concomitant]
     Active Substance: CYCLIZINE
     Dosage: 1 DOSAGE FORMS DAILY; TEA-TIME
     Dates: start: 20181113
  4. DOXYCYCLINE. [Concomitant]
     Active Substance: DOXYCYCLINE
     Dates: start: 20181106, end: 20181119
  5. AMOXICILLIN. [Concomitant]
     Active Substance: AMOXICILLIN
     Dosage: 3 DOSAGE FORMS DAILY;
     Dates: start: 20181204, end: 20181211
  6. CEFOTAXIME [Concomitant]
     Active Substance: CEFOTAXIME SODIUM
     Dates: start: 20181105, end: 20181105
  7. CLARITHROMYCIN. [Concomitant]
     Active Substance: CLARITHROMYCIN
     Dates: start: 20181211, end: 20181218
  8. BUTEC [Concomitant]
     Active Substance: BUPRENORPHINE
     Dosage: APPLY
     Dates: start: 20190115
  9. FERROUS FUMARATE [Concomitant]
     Active Substance: FERROUS FUMARATE
     Dosage: 3 DOSAGE FORMS DAILY;
     Dates: start: 20181024
  10. CLOPIDOGREL [Concomitant]
     Active Substance: CLOPIDOGREL BISULFATE
     Dosage: 1 DOSAGE FORMS DAILY; EACH MORNING
     Dates: start: 20181023
  11. FENBID [Concomitant]
     Active Substance: IBUPROFEN
     Dosage: APPLY TO THE AFFECTED AREA(S) UP TO THREE TIMES
     Dates: start: 20181023
  12. TINZAPARIN [Concomitant]
     Active Substance: TINZAPARIN
     Dates: start: 20181105, end: 20181105
  13. CODEINE PHOSPHATE [Concomitant]
     Active Substance: CODEINE PHOSPHATE
     Dates: start: 20181023, end: 20190108
  14. LANSOPRAZOLE. [Concomitant]
     Active Substance: LANSOPRAZOLE
     Dates: start: 20181023
  15. SODIUM CHLORIDE. [Concomitant]
     Active Substance: SODIUM CHLORIDE
     Dates: start: 20181104, end: 20181105
  16. DOCUSATE SODIUM. [Concomitant]
     Active Substance: DOCUSATE SODIUM
     Dates: start: 20181023
  17. SALMETEROL [Concomitant]
     Active Substance: SALMETEROL
     Dosage: ACTUATION
     Dates: start: 20181023
  18. ATORVASTATIN [Concomitant]
     Active Substance: ATORVASTATIN
     Route: 065
     Dates: start: 20181023
  19. PREDNISOLONE. [Concomitant]
     Active Substance: PREDNISOLONE
     Dosage: 6 DOSAGE FORMS DAILY;
     Dates: start: 20181211, end: 20181216
  20. CASSIA [Concomitant]
     Dosage: 1-2 TABLET
     Dates: start: 20181023
  21. PARACETAMOL [Concomitant]
     Active Substance: ACETAMINOPHEN
     Dates: start: 20181023
  22. CARBOCISTEINE [Concomitant]
     Active Substance: CARBOCYSTEINE
     Dosage: 30 ML DAILY;
     Dates: start: 20181228

REACTIONS (1)
  - Blood sodium decreased [Unknown]
